FAERS Safety Report 9051100 (Version 2)
Quarter: 2013Q1

REPORT INFORMATION
  Report Type: Spontaneous
  Country: IT (occurrence: IT)
  Receive Date: 20130206
  Receipt Date: 20130319
  Transmission Date: 20140127
  Serious: Yes (Hospitalization)
  Sender: FDA-Public Use
  Company Number: IT-PFIZER INC-2013045996

PATIENT
  Age: 59 Year
  Sex: Female

DRUGS (3)
  1. CISPLATIN [Suspect]
     Indication: LUNG ADENOCARCINOMA
     Dosage: 70 MG, CYCLIC
     Route: 042
     Dates: start: 20121124, end: 20121124
  2. OMEPRAZOL [Concomitant]
     Dosage: 20 MG, UNK
     Route: 048
  3. DUROGESIC [Concomitant]

REACTIONS (8)
  - Bronchospasm [Recovering/Resolving]
  - Cyanosis [Recovering/Resolving]
  - Dyspnoea [Recovering/Resolving]
  - Nausea [Recovering/Resolving]
  - Vomiting [Recovering/Resolving]
  - Pruritus generalised [Recovering/Resolving]
  - Hyperhidrosis [Recovering/Resolving]
  - Agitation [Recovering/Resolving]
